FAERS Safety Report 8098465-X (Version None)
Quarter: 2012Q1

REPORT INFORMATION
  Report Type: 
  Country: None (occurrence: None)
  Receive Date: 20120129
  Receipt Date: 20111013
  Transmission Date: 20120608
  Serious: No
  Sender: FDA-Public Use
  Company Number: US-ABBOTT-11P-163-0854634-00

PATIENT
  Sex: Female
  Weight: 58.112 kg

DRUGS (4)
  1. HUMIRA [Suspect]
     Indication: RHEUMATOID ARTHRITIS
     Route: 058
     Dates: start: 20070501, end: 20110901
  2. ESTRADIOL [Concomitant]
     Indication: OSTEOPOROSIS PROPHYLAXIS
  3. PROZAC [Concomitant]
     Indication: EMOTIONAL DISORDER
     Dates: start: 19930101
  4. ESTRADIOL [Concomitant]
     Indication: HORMONE THERAPY

REACTIONS (2)
  - ACNE [None]
  - LEUKOPENIA [None]
